FAERS Safety Report 11614606 (Version 3)
Quarter: 2016Q3

REPORT INFORMATION
  Report Type: Spontaneous
  Country: CN (occurrence: CN)
  Receive Date: 20151009
  Receipt Date: 20160704
  Transmission Date: 20161109
  Serious: Yes (Death, Hospitalization)
  Sender: FDA-Public Use
  Company Number: CN-PFIZER INC-2015148277

PATIENT
  Age: 47 Year
  Sex: Female

DRUGS (1)
  1. SUTENT [Suspect]
     Active Substance: SUNITINIB MALATE
     Indication: RENAL CELL CARCINOMA
     Dosage: UNK

REACTIONS (4)
  - Disease progression [Fatal]
  - White blood cell count decreased [Unknown]
  - Renal cell carcinoma [Fatal]
  - Dyskinesia [Not Recovered/Not Resolved]
